FAERS Safety Report 18198757 (Version 1)
Quarter: 2020Q3

REPORT INFORMATION
  Report Type: Spontaneous
  Country: US (occurrence: US)
  Receive Date: 20200826
  Receipt Date: 20200826
  Transmission Date: 20201103
  Serious: Yes (Other)
  Sender: FDA-Public Use
  Company Number: US-MYLANLABS-2020M1074646

PATIENT
  Age: 17 Year
  Sex: Female

DRUGS (10)
  1. CAPECITABINE. [Suspect]
     Active Substance: CAPECITABINE
     Indication: NEUROENDOCRINE CARCINOMA
     Dosage: 1000 MILLIGRAM, BID
     Route: 048
  2. TEMOZOLOMIDE. [Suspect]
     Active Substance: TEMOZOLOMIDE
     Indication: OVARIAN CANCER
  3. TEMOZOLOMIDE. [Suspect]
     Active Substance: TEMOZOLOMIDE
     Indication: NEUROENDOCRINE CARCINOMA
     Dosage: 250 MILLIGRAM, BID
     Route: 048
  4. ETOPOSIDE. [Concomitant]
     Active Substance: ETOPOSIDE
     Indication: NEUROENDOCRINE CARCINOMA
     Dosage: UNK, CYCLE SHE UNDERWENT TWO CYCLES
     Route: 065
  5. CARBOPLATIN. [Suspect]
     Active Substance: CARBOPLATIN
     Indication: OVARIAN SERTOLI-LEYDIG CELL TUMOUR
     Dosage: 400 MILLIGRAM/SQ. METER, CYCLE
     Route: 065
  6. CISPLATIN. [Suspect]
     Active Substance: CISPLATIN
     Indication: NEUROENDOCRINE CARCINOMA
     Dosage: SHE UNDERWENT TWO CYCLES
     Route: 065
  7. CISPLATIN. [Suspect]
     Active Substance: CISPLATIN
     Indication: OVARIAN CANCER
  8. CAPECITABINE. [Suspect]
     Active Substance: CAPECITABINE
     Indication: OVARIAN CANCER
  9. PACLITAXEL. [Suspect]
     Active Substance: PACLITAXEL
     Indication: OVARIAN SERTOLI-LEYDIG CELL TUMOUR
     Dosage: 175 MILLIGRAM/SQ. METER, CYCLE
     Route: 065
  10. ETOPOSIDE. [Concomitant]
     Active Substance: ETOPOSIDE
     Indication: OVARIAN CANCER

REACTIONS (4)
  - Normal newborn [Recovered/Resolved]
  - Contraindicated product administered [Unknown]
  - Ototoxicity [Unknown]
  - Maternal exposure during pregnancy [Recovered/Resolved]
